FAERS Safety Report 17655691 (Version 1)
Quarter: 2020Q2

REPORT INFORMATION
  Report Type: Spontaneous
  Country: US (occurrence: US)
  Receive Date: 20200410
  Receipt Date: 20200410
  Transmission Date: 20200713
  Serious: No
  Sender: FDA-Public Use
  Company Number: US-BRISTOL-MYERS SQUIBB COMPANY-BMS-2020-027442

PATIENT
  Sex: Female
  Weight: 88.44 kg

DRUGS (5)
  1. CRANBERRY [ASCORBIC ACID;VACCINIUM SPP.] [Concomitant]
     Active Substance: ASCORBIC ACID\CRANBERRY
     Indication: PRODUCT USED FOR UNKNOWN INDICATION
     Dosage: 2 PILLS
     Route: 065
  2. JANTOVEN [Suspect]
     Active Substance: WARFARIN SODIUM
     Indication: EMBOLISM VENOUS
     Dosage: 5 MILLIGRAM
     Route: 065
  3. COUMADIN [Suspect]
     Active Substance: WARFARIN SODIUM
     Indication: EMBOLISM VENOUS
     Dosage: 2.5 MILLIGRAM DAILY SUNDAY, TUESDAY AND THURSDAY
     Route: 048
  4. COUMADIN [Suspect]
     Active Substance: WARFARIN SODIUM
     Indication: PRODUCT USED FOR UNKNOWN INDICATION
     Dosage: 5 MG DAILY REST OF THE DAYS
     Route: 048
  5. VITAMINS NOS [Concomitant]
     Active Substance: VITAMINS
     Indication: PRODUCT USED FOR UNKNOWN INDICATION
     Dosage: UNK
     Route: 065

REACTIONS (1)
  - International normalised ratio abnormal [Unknown]
